FAERS Safety Report 9508479 (Version 1)
Quarter: 2020Q3

REPORT INFORMATION
  Report Type: Spontaneous
  Country: GB (occurrence: None)
  Receive Date: 20130905
  Receipt Date: 20130905
  Transmission Date: 20201104
  Serious: Yes (Hospitalization)
  Sender: FDA-Public Use
  Company Number: 2013AP007723

PATIENT
  Sex: Female

DRUGS (2)
  1. ALENDRONATE (ALENDRONATE SODIUM) [Suspect]
     Active Substance: ALENDRONATE SODIUM
     Indication: OSTEOPOROSIS
     Route: 048
     Dates: start: 2011, end: 2011
  2. IBANDRONIC ACID. [Suspect]
     Active Substance: IBANDRONIC ACID
     Indication: OSTEOPOROSIS
     Route: 042
     Dates: start: 2011

REACTIONS (13)
  - Back pain [None]
  - Back injury [None]
  - Diarrhoea [None]
  - Malaise [None]
  - Palpitations [None]
  - Herpes zoster [None]
  - Dysaesthesia [None]
  - Paraesthesia [None]
  - Feeling abnormal [None]
  - Dysphagia [None]
  - Dizziness [None]
  - Hypersensitivity [None]
  - Fall [None]
